FAERS Safety Report 19605988 (Version 1)
Quarter: 2021Q3

REPORT INFORMATION
  Report Type: Report from Study
  Country: None (occurrence: HU)
  Receive Date: 20210723
  Receipt Date: 20210723
  Transmission Date: 20211014
  Serious: Yes (Death, Life-Threatening, Hospitalization, Disabling, Other)
  Sender: FDA-Public Use
  Company Number: HU-ABBVIE-21P-076-3852488-00

PATIENT
  Age: 71 Year
  Sex: Female
  Weight: 73.5 kg

DRUGS (14)
  1. ASPIRIN. [Concomitant]
     Active Substance: ASPIRIN
     Indication: THROMBOSIS PROPHYLAXIS
     Route: 048
     Dates: start: 2019
  2. VENETOCLAX. [Suspect]
     Active Substance: VENETOCLAX
     Indication: PLASMA CELL MYELOMA
     Route: 048
     Dates: start: 20210202, end: 20210407
  3. ROSUTEC [Concomitant]
     Indication: CARDIOVASCULAR EVENT PROPHYLAXIS
     Route: 048
     Dates: start: 2019
  4. SUMETROLIM [Concomitant]
     Active Substance: SULFAMETHOXAZOLE\TRIMETHOPRIM
     Indication: ANTIBIOTIC PROPHYLAXIS
     Dosage: 400/80 MG
     Route: 048
     Dates: start: 20210129
  5. LEVOFLOXACIN. [Concomitant]
     Active Substance: LEVOFLOXACIN
     Indication: ANTIBIOTIC PROPHYLAXIS
     Route: 048
     Dates: start: 20210129
  6. COVEREX AS COMBIFORTE [Concomitant]
     Indication: HYPERTENSION
     Dosage: 10/2.5 MG
     Route: 048
     Dates: start: 2017
  7. DEXAMETHASONE. [Suspect]
     Active Substance: DEXAMETHASONE
     Indication: PLASMA CELL MYELOMA
     Dosage: DAYS 1, 8, 15, AND 22 OF EACH 28 DAY CYCLE
     Route: 048
     Dates: start: 20210202, end: 20210222
  8. AMLODIPINE [Concomitant]
     Active Substance: AMLODIPINE BESYLATE
     Indication: HYPERTENSION
     Route: 048
     Dates: start: 20210203
  9. DEXAMETHASONE. [Suspect]
     Active Substance: DEXAMETHASONE
     Dosage: DAYS 1, 8, 15, AND 22 OF EACH 28 DAY CYCLE
     Route: 048
     Dates: start: 20210301, end: 20210407
  10. CARFILZOMIB [Suspect]
     Active Substance: CARFILZOMIB
     Dosage: CYCLE 1: DAYS 8 AND 15: CYCLE 2+: DAYS 1, 8 AND 15 OF EACH 28 DAY CYCLE
     Route: 042
     Dates: start: 20210208, end: 20210407
  11. CARFILZOMIB [Suspect]
     Active Substance: CARFILZOMIB
     Indication: PLASMA CELL MYELOMA
     Dosage: CYCLE 1 DAY 1
     Route: 042
     Dates: start: 20210202, end: 20210202
  12. DOXAZOSIN [Concomitant]
     Active Substance: DOXAZOSIN MESYLATE
     Indication: HYPERTENSION
     Route: 048
     Dates: start: 2017
  13. ACICLOVIR [Concomitant]
     Active Substance: ACYCLOVIR
     Indication: ANTIBIOTIC PROPHYLAXIS
     Route: 048
     Dates: start: 20210125
  14. PANTOPRAZOLE [Concomitant]
     Active Substance: PANTOPRAZOLE
     Indication: GASTROOESOPHAGEAL REFLUX PROPHYLAXIS
     Route: 048
     Dates: start: 2019

REACTIONS (4)
  - Sepsis [Fatal]
  - Respiratory failure [Unknown]
  - Cardiac failure acute [Fatal]
  - Pneumonia [Unknown]

NARRATIVE: CASE EVENT DATE: 20210407
